FAERS Safety Report 18512813 (Version 1)
Quarter: 2020Q4

REPORT INFORMATION
  Report Type: Spontaneous
  Country: CN (occurrence: CN)
  Receive Date: 20201117
  Receipt Date: 20201117
  Transmission Date: 20210114
  Serious: Yes (Hospitalization, Other)
  Sender: FDA-Public Use
  Company Number: CN-ASTRAZENECA-2020SF37844

PATIENT
  Age: 79 Year
  Sex: Female

DRUGS (4)
  1. LIPITOR [Concomitant]
     Active Substance: ATORVASTATIN CALCIUM
     Indication: HYPERTENSION
     Dosage: BEFORE GOING TO BED
     Route: 048
  2. TRADITIONAL CHINESE MEDICINE [Concomitant]
     Active Substance: HERBALS\HOMEOPATHICS
  3. BICYCLOL [Concomitant]
     Active Substance: BICYCLOL
     Indication: LIVER DISORDER
  4. IRESSA [Suspect]
     Active Substance: GEFITINIB
     Indication: NON-SMALL CELL LUNG CANCER
     Route: 048

REACTIONS (18)
  - Protein urine present [Unknown]
  - Lymphatic disorder [Unknown]
  - Pericardial effusion [Unknown]
  - Hepatic failure [Unknown]
  - Liver injury [Unknown]
  - Haemoptysis [Unknown]
  - Weight decreased [Unknown]
  - Drug resistance [Unknown]
  - Oedema [Unknown]
  - Dyspnoea [Unknown]
  - Acne [Recovered/Resolved]
  - Lymphadenopathy [Unknown]
  - Nephritis [Unknown]
  - Renal failure [Unknown]
  - Onychoclasis [Unknown]
  - Decreased appetite [Recovered/Resolved]
  - Dyschezia [Unknown]
  - Asthenia [Recovered/Resolved]

NARRATIVE: CASE EVENT DATE: 202007
